FAERS Safety Report 9093672 (Version 5)
Quarter: 2013Q4

REPORT INFORMATION
  Report Type: Report from Study
  Country: DE (occurrence: DE)
  Receive Date: 20130201
  Receipt Date: 20131028
  Transmission Date: 20140711
  Serious: Yes (Other)
  Sender: FDA-Public Use
  Company Number: DE-ELI_LILLY_AND_COMPANY-DE201301007933

PATIENT
  Age: 46 Year
  Sex: Male
  Weight: 81.6 kg

DRUGS (3)
  1. OLANZAPINE LONG-ACTING IM [Suspect]
     Indication: SCHIZOPHRENIA
     Dosage: 300 MG EVEY 3 WEEKS
     Route: 030
     Dates: start: 20100715
  2. LAMOTRIGIN [Concomitant]
     Indication: AFFECTIVE DISORDER
     Dosage: UNK
     Dates: start: 20090907
  3. QUETIAPINE [Concomitant]
     Indication: PSYCHOTIC DISORDER
     Dosage: UNK
     Dates: start: 20120921

REACTIONS (5)
  - Speech disorder [Recovered/Resolved]
  - Psychomotor retardation [Recovered/Resolved]
  - Gait disturbance [Recovered/Resolved]
  - Confusional state [Recovered/Resolved]
  - Sedation [Recovered/Resolved]
